FAERS Safety Report 8499443 (Version 3)
Quarter: 2012Q4

REPORT INFORMATION
  Report Type: 
  Country: US (occurrence: US)
  Receive Date: 20120409
  Receipt Date: 20121125
  Transmission Date: 20130627
  Serious: Yes (Hospitalization)
  Sender: FDA-Public Use
  Company Number: US-BAYER-2012-031288

PATIENT
  Age: 37 Year
  Sex: Female
  Weight: 90.7 kg

DRUGS (16)
  1. OCELLA [Suspect]
     Dosage: UNK
     Dates: start: 2004, end: 20100815
  2. HYDROCODONE [Concomitant]
     Indication: PAIN
     Dosage: UNK
     Dates: start: 2008
  3. LEXAPRO [Concomitant]
     Indication: DEPRESSION
     Dosage: UNK
     Dates: start: 2010
  4. ATENOLOL [Concomitant]
     Indication: HEARTBEATS IRREGULAR
     Dosage: UNK
     Dates: start: 2010
  5. MILNACIPRAN [Concomitant]
     Indication: FIBROMYALGIA
     Dosage: UNK
     Dates: start: 2010
  6. XANAX [Concomitant]
     Indication: SLEEP DISORDER NOS
     Dosage: UNK
     Dates: start: 2010
  7. XANAX [Concomitant]
     Indication: ANXIETY
  8. TIZANIDINE HYDROCHLORIDE [Concomitant]
     Dosage: 2 mg, UNK
     Route: 048
     Dates: start: 20100608
  9. PROPRANOLOL [Concomitant]
     Dosage: 20 mg, UNK
     Route: 048
     Dates: start: 20100722
  10. BACLOFEN [Concomitant]
     Dosage: 10 mg, UNK
     Route: 048
     Dates: start: 20100716
  11. GABAPENTIN [Concomitant]
     Dosage: 300 mg, UNK
     Route: 048
     Dates: start: 20100716
  12. PENTAZOCINE AND NALOXONE [Concomitant]
     Dosage: UNK
     Route: 048
     Dates: start: 20100719
  13. DIAZEPAM [Concomitant]
     Dosage: 10 mg, UNK
     Route: 048
     Dates: start: 20100726
  14. HYDROCODONE W/APAP [Concomitant]
     Dosage: 10/325mg
     Route: 048
     Dates: start: 20100728
  15. INDERAL [Concomitant]
     Dosage: 20 mg, PRN
     Route: 048
     Dates: start: 20100816
  16. BOTOX [Concomitant]
     Indication: MUSCLE SPASM

REACTIONS (3)
  - Pulmonary embolism [Recovered/Resolved]
  - Anxiety [None]
  - Depression [None]
